FAERS Safety Report 8157465-1 (Version None)
Quarter: 2012Q1

REPORT INFORMATION
  Report Type: 
  Country: None (occurrence: None)
  Receive Date: 20120217
  Receipt Date: 20120213
  Transmission Date: 20120608
  Serious: Yes (Other)
  Sender: FDA-Public Use
  Company Number: A0965617A

PATIENT
  Age: 62 Year
  Sex: Female

DRUGS (2)
  1. LOPERAMIDE HCL [Concomitant]
  2. METHYLCELLULOSE (FORMULATION UNKNOWN) (METHYLCELLULOSE) [Suspect]
     Dosage: ORAL
     Route: 048

REACTIONS (6)
  - FAECES HARD [None]
  - ANORECTAL DISCOMFORT [None]
  - DRUG ADMINISTRATION ERROR [None]
  - PAINFUL DEFAECATION [None]
  - HAEMATOCHEZIA [None]
  - FAECAL INCONTINENCE [None]
